FAERS Safety Report 18090382 (Version 1)
Quarter: 2020Q3

REPORT INFORMATION
  Report Type: Spontaneous
  Country: FR (occurrence: FR)
  Receive Date: 20200730
  Receipt Date: 20200730
  Transmission Date: 20201103
  Serious: Yes (Other)
  Sender: FDA-Public Use
  Company Number: FR-TEVA-2020-FR-1806761

PATIENT
  Age: 56 Year
  Sex: Male
  Weight: 77 kg

DRUGS (8)
  1. RILMENIDINE [Concomitant]
     Active Substance: RILMENIDINE
  2. INDAPAMIDE. [Suspect]
     Active Substance: INDAPAMIDE
     Indication: HYPERTENSION
     Dosage: 1.5 MILLIGRAM
     Route: 048
     Dates: end: 20200629
  3. LATANOPROST. [Concomitant]
     Active Substance: LATANOPROST
  4. TEMERIT 5 MG, COMPRIME QUADRISECABLE [Suspect]
     Active Substance: NEBIVOLOL HYDROCHLORIDE
     Indication: HYPERTENSION
     Dosage: 0.5 DOSAGEFORM
     Route: 048
     Dates: end: 20200628
  5. ADENURIC [Concomitant]
     Active Substance: FEBUXOSTAT
  6. ALPRAZOLAM. [Concomitant]
     Active Substance: ALPRAZOLAM
  7. TARKA [Suspect]
     Active Substance: TRANDOLAPRIL\VERAPAMIL HYDROCHLORIDE
     Indication: HYPERTENSION
     Dosage: 1 DOSAGEFORM
     Route: 048
     Dates: end: 20200629
  8. ZOPICLONE [Concomitant]
     Active Substance: ZOPICLONE

REACTIONS (4)
  - Sinus tachycardia [Recovered/Resolved]
  - Hypokalaemia [Recovered/Resolved]
  - Electrocardiogram QT prolonged [Recovered/Resolved]
  - Chest pain [Recovered/Resolved]

NARRATIVE: CASE EVENT DATE: 202006
